FAERS Safety Report 8458411-3 (Version None)
Quarter: 2012Q2

REPORT INFORMATION
  Report Type: 
  Country: None (occurrence: None)
  Receive Date: 20120622
  Receipt Date: 20120613
  Transmission Date: 20120825
  Serious: Yes (Hospitalization, Other)
  Sender: FDA-Public Use
  Company Number: US-ASTELLAS-2012US005535

PATIENT
  Sex: Female
  Weight: 61 kg

DRUGS (1)
  1. PROGRAF [Suspect]
     Indication: RENAL TRANSPLANT
     Dosage: 3 MG QAM, 2 MG QHS
     Route: 048

REACTIONS (2)
  - TREATMENT NONCOMPLIANCE [None]
  - PANCREAS TRANSPLANT [None]
